FAERS Safety Report 13379891 (Version 1)
Quarter: 2017Q1

REPORT INFORMATION
  Report Type: Spontaneous
  Country: US (occurrence: US)
  Receive Date: 20170328
  Receipt Date: 20170328
  Transmission Date: 20170429
  Serious: Yes (Hospitalization)
  Sender: FDA-Public Use
  Company Number: US-ELI_LILLY_AND_COMPANY-US201607008868

PATIENT
  Age: 52 Year
  Sex: Female

DRUGS (2)
  1. CYMBALTA [Suspect]
     Active Substance: DULOXETINE HYDROCHLORIDE
     Indication: PRODUCT USED FOR UNKNOWN INDICATION
     Dosage: UNK, UNKNOWN
     Route: 065
  2. CYMBALTA [Suspect]
     Active Substance: DULOXETINE HYDROCHLORIDE
     Dosage: 60 MG, QD
     Route: 048

REACTIONS (14)
  - Vertigo [Unknown]
  - Anxiety [Unknown]
  - Subdural haematoma [Unknown]
  - Dizziness [Unknown]
  - Dysphoria [Unknown]
  - Disturbance in attention [Unknown]
  - Nausea [Unknown]
  - Headache [Unknown]
  - Sensory disturbance [Unknown]
  - Drug withdrawal syndrome [Unknown]
  - Intracranial aneurysm [Unknown]
  - Confusional state [Unknown]
  - Paraesthesia [Unknown]
  - Vision blurred [Unknown]

NARRATIVE: CASE EVENT DATE: 201109
